FAERS Safety Report 18525282 (Version 1)
Quarter: 2020Q4

REPORT INFORMATION
  Report Type: Spontaneous
  Country: DE (occurrence: DE)
  Receive Date: 20201120
  Receipt Date: 20201120
  Transmission Date: 20210114
  Serious: Yes (Hospitalization)
  Sender: FDA-Public Use
  Company Number: DE-TEVA-2020-DE-1850055

PATIENT
  Age: 59 Year
  Sex: Male
  Weight: 103 kg

DRUGS (5)
  1. MESALAZINE [Concomitant]
     Active Substance: MESALAMINE
     Dosage: 2 DOSAGE FORMS DAILY; 1200 MG, 2-0-0-0
     Route: 048
  2. PANTOPRAZOL [Concomitant]
     Active Substance: PANTOPRAZOLE SODIUM
     Dosage: 40 MILLIGRAM DAILY; 1-0-0-0
     Route: 048
  3. CALCIMAGON-D3 UNO [Concomitant]
     Dosage: 2 DOSAGE FORMS DAILY; 2-0-0-0
     Route: 048
  4. TRAMADOL. [Concomitant]
     Active Substance: TRAMADOL
     Dosage: 2 DOSAGE FORMS DAILY; 2-0-0-0
     Route: 048
  5. TADALAFIL. [Suspect]
     Active Substance: TADALAFIL
     Dosage: IF NECESSARY
     Route: 048

REACTIONS (4)
  - Arrhythmia [Unknown]
  - Dizziness [Unknown]
  - Cold sweat [Unknown]
  - Tachycardia [Unknown]
